FAERS Safety Report 10213854 (Version 1)
Quarter: 2014Q2

REPORT INFORMATION
  Report Type: Spontaneous
  Country: JP (occurrence: None)
  Receive Date: 20140529
  Receipt Date: 20140529
  Transmission Date: 20141212
  Serious: Yes (Hospitalization)
  Sender: FDA-Public Use
  Company Number: E7389-02078-SPO-JP

PATIENT
  Age: 64 Year
  Sex: Female

DRUGS (1)
  1. HALAVEN [Suspect]
     Indication: BREAST CANCER RECURRENT
     Dosage: 1.1 MG/M2, 2 IN 21 Y, INTRAVENOUS INFUSION
     Route: 042
     Dates: start: 20111203

REACTIONS (2)
  - Febrile neutropenia [None]
  - Septic shock [None]
